FAERS Safety Report 21166763 (Version 1)
Quarter: 2022Q3

REPORT INFORMATION
  Report Type: Report from Study
  Country: CA (occurrence: CA)
  Receive Date: 20220803
  Receipt Date: 20220803
  Transmission Date: 20221026
  Serious: Yes (Hospitalization, Other)
  Sender: FDA-Public Use
  Company Number: CA-AMGEN-USACT2022128633

PATIENT
  Age: 3 Year
  Sex: Male
  Weight: 10.5 kg

DRUGS (7)
  1. BLINATUMOMAB [Suspect]
     Active Substance: BLINATUMOMAB
     Indication: B precursor type acute leukaemia
     Dosage: 15 MICROGRAM/SQ. METER, QD ( IV CONTINUOUS)
     Route: 042
  2. LEUCOVORIN CALCIUM [Suspect]
     Active Substance: LEUCOVORIN CALCIUM
     Indication: B precursor type acute leukaemia
     Dosage: TOTAL DOSE ADMINISTERED: 10 MILLIGRAM
     Route: 065
     Dates: start: 20220616, end: 20220616
  3. METHOTREXATE [Suspect]
     Active Substance: METHOTREXATE
     Indication: B precursor type acute leukaemia
     Dosage: TOTAL DOSE ADMINISTERED: 32 MG
     Route: 037
     Dates: start: 20220615, end: 20220629
  4. METHOTREXATE [Suspect]
     Active Substance: METHOTREXATE
     Dosage: ORAL MTX HELD 03/JUL/2022 ONWARDS
     Route: 048
  5. MERCAPTOPURINE [Suspect]
     Active Substance: MERCAPTOPURINE
     Indication: B precursor type acute leukaemia
     Dosage: TOTAL DOSE ADMINISTERED: 550 MG
     Route: 048
     Dates: start: 20220615, end: 20220703
  6. PREDNISONE [Suspect]
     Active Substance: PREDNISONE
     Indication: B precursor type acute leukaemia
     Dosage: TOTAL DOSE ADMINISTERED: 105 MG
     Route: 065
     Dates: start: 20220615, end: 20220619
  7. VINCRISTINE SULFATE [Suspect]
     Active Substance: VINCRISTINE SULFATE
     Indication: B precursor type acute leukaemia
     Dosage: TOTAL DOSE ADMINISTERED: 0.78 MG
     Route: 065
     Dates: start: 20220615, end: 20220615

REACTIONS (1)
  - Pneumatosis intestinalis [Recovered/Resolved]

NARRATIVE: CASE EVENT DATE: 20220630
